FAERS Safety Report 4433465-X (Version None)
Quarter: 2004Q3

REPORT INFORMATION
  Report Type: 
  Country: None (occurrence: None)
  Receive Date: 20040825
  Receipt Date: 20040825
  Transmission Date: 20050211
  Serious: Yes (Hospitalization)
  Sender: FDA-Public Use
  Company Number: None

PATIENT
  Age: 57 Year
  Sex: Male
  Weight: 97.5 kg

DRUGS (2)
  1. ZYVOX [Suspect]
     Indication: CELLULITIS
     Dosage: 600MG  BID  ORAL
     Route: 048
     Dates: start: 20040823, end: 20040824
  2. ZOLOFT [Suspect]
     Indication: DEPRESSION
     Dosage: 25 MG  DAILY   ORAL
     Route: 048
     Dates: start: 20040815, end: 20040824

REACTIONS (3)
  - NAUSEA [None]
  - SEROTONIN SYNDROME [None]
  - VOMITING [None]
